FAERS Safety Report 8416497-6 (Version None)
Quarter: 2012Q2

REPORT INFORMATION
  Report Type: 
  Country: None (occurrence: None)
  Receive Date: 20120323
  Receipt Date: 20110805
  Transmission Date: 20120825
  Serious: Yes (Other)
  Sender: FDA-Public Use
  Company Number: 163-21880-11081042

PATIENT
  Age: 74 Year
  Sex: Male
  Weight: 88.4514 kg

DRUGS (12)
  1. PERCOCET [Concomitant]
  2. ZOMETA [Concomitant]
  3. REVLIMID [Suspect]
     Indication: MULTIPLE MYELOMA
     Dosage: 10 MG, QD, PO ; 5 MG, QD, PO
     Route: 048
     Dates: start: 20101101
  4. REVLIMID [Suspect]
     Indication: MULTIPLE MYELOMA
     Dosage: 10 MG, QD, PO ; 5 MG, QD, PO
     Route: 048
     Dates: start: 20110203, end: 20110728
  5. VITAMIN D [Concomitant]
  6. WARFAIRN (WARFARIN) [Concomitant]
  7. SIMVASTATIN [Concomitant]
  8. VELCADE [Concomitant]
  9. QUINAPRIL HCL [Concomitant]
  10. DILTIAZEM [Concomitant]
  11. DEXAMETHASONE [Concomitant]
  12. PRILOSEC [Concomitant]

REACTIONS (1)
  - PANCYTOPENIA [None]
